FAERS Safety Report 6267996-7 (Version None)
Quarter: 2009Q3

REPORT INFORMATION
  Report Type: 
  Country: None (occurrence: None)
  Receive Date: 20090713
  Receipt Date: 20090629
  Transmission Date: 20100115
  Serious: Yes (Hospitalization)
  Sender: FDA-Public Use
  Company Number: 2009SP001681

PATIENT
  Age: 85 Year
  Sex: Male

DRUGS (15)
  1. XOPENEX [Suspect]
     Indication: CARDIAC FAILURE CONGESTIVE
     Dosage: 1.25 MG/3ML;PRN;INHALATION, 1.25 MG/3ML;QID;INHALATION
     Route: 055
     Dates: start: 20090101, end: 20090614
  2. XOPENEX [Suspect]
     Indication: CARDIAC FAILURE CONGESTIVE
     Dosage: 1.25 MG/3ML;PRN;INHALATION, 1.25 MG/3ML;QID;INHALATION
     Route: 055
     Dates: start: 20090618, end: 20090619
  3. DUONEB [Suspect]
     Dates: start: 20090601, end: 20090601
  4. ALBUTEROL [Suspect]
  5. COREG [Concomitant]
  6. LASIX [Concomitant]
  7. LEXAPRO [Concomitant]
  8. FLOMAX [Concomitant]
  9. SIMVASTATIN [Concomitant]
  10. COUMADIN [Concomitant]
  11. GLIPIZIDE [Concomitant]
  12. METFORMIN HCL [Concomitant]
  13. MAGNESIUM [Concomitant]
  14. FISH OIL [Concomitant]
  15. PREV MEDS [Concomitant]

REACTIONS (6)
  - CELLULITIS [None]
  - CONDITION AGGRAVATED [None]
  - CONFUSIONAL STATE [None]
  - FATIGUE [None]
  - INAPPROPRIATE SCHEDULE OF DRUG ADMINISTRATION [None]
  - LETHARGY [None]
